FAERS Safety Report 18475060 (Version 1)
Quarter: 2020Q4

REPORT INFORMATION
  Report Type: Report from Study
  Country: DO (occurrence: DO)
  Receive Date: 20201106
  Receipt Date: 20201106
  Transmission Date: 20210114
  Serious: Yes (Other)
  Sender: FDA-Public Use
  Company Number: NVSC2020DO295264

PATIENT
  Age: 63 Year
  Sex: Female

DRUGS (1)
  1. VALSARTAN. [Suspect]
     Active Substance: VALSARTAN
     Indication: PRODUCT USED FOR UNKNOWN INDICATION
     Dosage: 320 MG
     Route: 065

REACTIONS (4)
  - Cardiac failure [Unknown]
  - Malaise [Unknown]
  - Hypertension [Unknown]
  - Chest pain [Unknown]

NARRATIVE: CASE EVENT DATE: 2014
